FAERS Safety Report 18600632 (Version 1)
Quarter: 2020Q4

REPORT INFORMATION
  Report Type: Spontaneous
  Country: US (occurrence: US)
  Receive Date: 20201210
  Receipt Date: 20201210
  Transmission Date: 20210114
  Serious: Yes (Disabling)
  Sender: FDA-Public Use
  Company Number: None

PATIENT
  Age: 27 Year
  Sex: Male
  Weight: 72 kg

DRUGS (7)
  1. AMOXICILLIN. [Concomitant]
     Active Substance: AMOXICILLIN
  2. OMEGA 3 [Concomitant]
     Active Substance: OMEGA-3 FATTY ACIDS
  3. CIPRODEX [Concomitant]
     Active Substance: CIPROFLOXACIN HYDROCHLORIDE\DEXAMETHASONE
  4. VITAMIN D [Concomitant]
     Active Substance: VITAMIN D NOS
  5. OIL OF OREGANO [Concomitant]
  6. NAPROXEN. [Suspect]
     Active Substance: NAPROXEN
     Indication: CONCUSSION
     Dates: start: 20200905, end: 20200909
  7. VITAMIN C [Concomitant]
     Active Substance: ASCORBIC ACID

REACTIONS (1)
  - Tinnitus [None]

NARRATIVE: CASE EVENT DATE: 20200906
